FAERS Safety Report 6619780-X (Version None)
Quarter: 2010Q1

REPORT INFORMATION
  Report Type: 
  Country: None (occurrence: None)
  Receive Date: 20100309
  Receipt Date: 20100302
  Transmission Date: 20100710
  Serious: Yes (Other)
  Sender: FDA-Public Use
  Company Number: PHHO2010GB01062

PATIENT
  Sex: Male
  Weight: 87.2 kg

DRUGS (9)
  1. ZOLEDRONATE T29581+SOLINJ+BM [Suspect]
     Indication: METASTASES TO BONE
     Dosage: 4 MG, UNK
     Route: 042
     Dates: start: 20090818, end: 20090929
  2. ZOLEDRONATE T29581+SOLINJ+BM [Suspect]
     Dosage: 4 MG, UNK
     Route: 042
     Dates: start: 20091110
  3. CELECOXIB [Suspect]
     Dosage: 400 MG, UNK
     Route: 048
     Dates: start: 20090818, end: 20090929
  4. VITAMIN D [Concomitant]
  5. CALCIUM [Concomitant]
  6. HORMONES AND RELATED AGENTS [Concomitant]
     Dosage: UNK
     Route: 058
     Dates: start: 20090706
  7. SIMVASTATIN [Concomitant]
  8. DOXAZOSIN MESYLATE [Concomitant]
  9. DUTASTERIDE [Concomitant]

REACTIONS (8)
  - APHASIA [None]
  - BALANCE DISORDER [None]
  - CEREBELLAR ATROPHY [None]
  - CEREBRAL ATROPHY [None]
  - CEREBROVASCULAR ACCIDENT [None]
  - CEREBROVASCULAR DISORDER [None]
  - DYSGEUSIA [None]
  - TRANSIENT ISCHAEMIC ATTACK [None]
